FAERS Safety Report 5747547-3 (Version None)
Quarter: 2008Q2

REPORT INFORMATION
  Report Type: 
  Country: None (occurrence: None)
  Receive Date: 20080523
  Receipt Date: 20080509
  Transmission Date: 20081010
  Serious: Yes (Hospitalization, Other)
  Sender: FDA-Public Use
  Company Number: US-ELI_LILLY_AND_COMPANY-US200711005052

PATIENT
  Sex: Female

DRUGS (3)
  1. FORTEO [Suspect]
     Indication: OSTEOPOROSIS
     Dates: start: 20060601, end: 20070901
  2. FORTEO [Suspect]
     Dates: start: 20070101
  3. ASPIRIN [Concomitant]

REACTIONS (6)
  - CEREBROVASCULAR ACCIDENT [None]
  - ENDODONTIC PROCEDURE [None]
  - JOINT HYPEREXTENSION [None]
  - MEMORY IMPAIRMENT [None]
  - SPEECH DISORDER [None]
  - VERTEBRAL ARTERY OCCLUSION [None]
